FAERS Safety Report 7804951-7 (Version None)
Quarter: 2011Q4

REPORT INFORMATION
  Report Type: 
  Country: None (occurrence: None)
  Receive Date: 20111010
  Receipt Date: 20111006
  Transmission Date: 20120403
  Serious: Yes (Other)
  Sender: FDA-Public Use
  Company Number: GXKR2011DE02746

PATIENT
  Sex: Female
  Weight: 60 kg

DRUGS (1)
  1. TRAMADOL HCL [Suspect]
     Indication: SCIATICA
     Dosage: 500 MG = 40 HUBS,ONCE/SINGLE
     Route: 048
     Dates: start: 20110101

REACTIONS (7)
  - FEAR OF DEATH [None]
  - NAUSEA [None]
  - ACCIDENTAL OVERDOSE [None]
  - FEELING ABNORMAL [None]
  - DRY MOUTH [None]
  - COLD SWEAT [None]
  - PARAESTHESIA [None]
